FAERS Safety Report 4491999-6 (Version None)
Quarter: 2004Q4

REPORT INFORMATION
  Report Type: 
  Country: None (occurrence: None)
  Receive Date: 20041101
  Receipt Date: 20041026
  Transmission Date: 20050328
  Serious: Yes (Hospitalization)
  Sender: FDA-Public Use
  Company Number: 040818-0000412

PATIENT
  Age: 20 Year
  Sex: Female
  Weight: 66.2252 kg

DRUGS (9)
  1. PANHEMATIN [Suspect]
     Indication: PORPHYRIA ACUTE
     Dosage: 200 MG;TIW
  2. ALBUMIN (HUMAN) [Suspect]
     Indication: PORPHYRIA ACUTE
     Dosage: IV
     Route: 042
  3. ALBUMIN (HUMAN) [Suspect]
  4. ALBUMIN (HUMAN) [Suspect]
  5. DEXTROSE [Concomitant]
  6. ZOFRAN [Concomitant]
  7. DIPHENHYDRAMINE [Concomitant]
  8. PROTONIX [Concomitant]
  9. FULVITE [Concomitant]

REACTIONS (2)
  - BACTERIA URINE IDENTIFIED [None]
  - STAPHYLOCOCCAL SEPSIS [None]
